FAERS Safety Report 4549199-7 (Version None)
Quarter: 2005Q1

REPORT INFORMATION
  Report Type: 
  Country: None (occurrence: None)
  Receive Date: 20050111
  Receipt Date: 20020912
  Transmission Date: 20050727
  Serious: Yes (Death, Hospitalization)
  Sender: FDA-Public Use
  Company Number: NSADSS2002032118

PATIENT
  Sex: Female
  Weight: 65 kg

DRUGS (14)
  1. REMICADE [Suspect]
     Route: 041
     Dates: start: 20010926
  2. REMICADE [Suspect]
     Indication: RHEUMATOID ARTHRITIS
     Route: 041
     Dates: start: 20010926
  3. VIANI [Concomitant]
     Route: 055
     Dates: start: 20020819
  4. VIANI [Concomitant]
     Indication: PNEUMONIA
     Route: 055
     Dates: start: 20020819
  5. KEIMAX [Concomitant]
     Indication: PNEUMONIA
     Route: 049
     Dates: start: 20020819
  6. ROXITHROMYCIN [Concomitant]
     Route: 049
     Dates: start: 20020718
  7. CORTISONE ACETATE [Concomitant]
     Route: 049
  8. CALCIUM/VITAMIN D [Concomitant]
     Route: 049
  9. CALCIUM/VITAMIN D [Concomitant]
     Route: 049
  10. CALCIUM/VITAMIN D [Concomitant]
     Route: 049
  11. AZITHROMYCIN [Concomitant]
     Indication: LARYNGOTRACHEITIS
     Route: 049
     Dates: start: 20020501
  12. TRANDOLAPRIL/VERAPAMIL [Concomitant]
     Route: 049
  13. NEXIUM [Concomitant]
     Indication: GASTRITIS
     Route: 049
     Dates: start: 20020819
  14. METOCLOPRAMIDE HYDROCHLORIDE [Concomitant]
     Indication: GASTRITIS
     Route: 049
     Dates: start: 20020819

REACTIONS (9)
  - ACUTE RESPIRATORY DISTRESS SYNDROME [None]
  - DISSEMINATED TUBERCULOSIS [None]
  - EMPYEMA [None]
  - GALLBLADDER PERFORATION [None]
  - HALLUCINATION [None]
  - LARYNGOTRACHEITIS [None]
  - LIMB OPERATION [None]
  - LUNG INFILTRATION [None]
  - PNEUMONIA [None]
